FAERS Safety Report 4453661-5 (Version None)
Quarter: 2004Q3

REPORT INFORMATION
  Report Type: 
  Country: None (occurrence: None)
  Receive Date: 20040920
  Receipt Date: 20040823
  Transmission Date: 20050211
  Serious: Yes (Other)
  Sender: FDA-Public Use
  Company Number: US-BRISTOL-MYERS SQUIBB COMPANY-12680609

PATIENT
  Age: 65 Year
  Sex: Female
  Weight: 91 kg

DRUGS (18)
  1. ERBITUX [Suspect]
     Indication: RECTAL CANCER METASTATIC
     Dosage: START DATE 11-MAR-04, REDUCED ON 20-MAY-04 TO 500MG EVERY OTHER WEEK, D/C ON 17-JUN-04
     Route: 042
     Dates: start: 20040101, end: 20040101
  2. ATIVAN [Concomitant]
     Indication: PREMEDICATION
     Route: 042
     Dates: start: 20040311, end: 20040311
  3. BENADRYL [Concomitant]
     Indication: PREMEDICATION
     Route: 042
     Dates: start: 20040311, end: 20040311
  4. DEXAMETHASONE [Concomitant]
     Indication: PREMEDICATION
     Route: 042
     Dates: start: 20040311, end: 20040311
  5. KYTRIL [Concomitant]
     Indication: PREMEDICATION
     Route: 042
     Dates: start: 20040311, end: 20040311
  6. TYLENOL [Concomitant]
     Indication: PREMEDICATION
     Dosage: 2 TABLETS
     Route: 048
     Dates: start: 20040311, end: 20040311
  7. CAMPTOSAR [Concomitant]
     Route: 042
  8. SYNTHROID [Concomitant]
  9. ELAVIL [Concomitant]
  10. K-DUR 10 [Concomitant]
  11. ALDACTONE [Concomitant]
  12. ZOFRAN [Concomitant]
  13. REGLAN [Concomitant]
  14. CELEBREX [Concomitant]
  15. VITAMIN B6 [Concomitant]
  16. NEXIUM [Concomitant]
  17. PROTONIX [Concomitant]
  18. ATENOLOL [Concomitant]

REACTIONS (2)
  - ANASTOMOTIC ULCER [None]
  - DERMATITIS ACNEIFORM [None]
